FAERS Safety Report 5905199-3 (Version None)
Quarter: 2008Q4

REPORT INFORMATION
  Report Type: 
  Country: None (occurrence: None)
  Receive Date: 20081001
  Receipt Date: 20080919
  Transmission Date: 20090506
  Serious: Yes (Death, Other)
  Sender: FDA-Public Use
  Company Number: US-PFIZER INC-2007069734

PATIENT
  Sex: Female

DRUGS (20)
  1. CHANTIX [Interacting]
     Indication: SMOKING CESSATION THERAPY
     Route: 048
     Dates: start: 20070802, end: 20070811
  2. PREVACID [Interacting]
     Indication: NAUSEA
     Route: 048
     Dates: start: 20060101
  3. HYDROCODONE BITARTRATE + ACETAMINOPHEN [Suspect]
     Indication: PAIN
     Dosage: FREQ:UP TO 3 TIMES A DAY
     Route: 048
     Dates: start: 19880101
  4. TEMAZEPAM [Suspect]
     Indication: INSOMNIA
     Route: 048
  5. TEMAZEPAM [Suspect]
     Indication: POST-TRAUMATIC STRESS DISORDER
  6. ZOLPIDEM [Suspect]
     Indication: INSOMNIA
     Route: 048
  7. ZOLPIDEM [Suspect]
     Indication: POST-TRAUMATIC STRESS DISORDER
  8. MIRTAZAPINE [Suspect]
     Indication: DEPRESSION
     Dosage: DAILY DOSE:90MG
     Route: 048
     Dates: start: 20000101
  9. PROMETHAZINE [Suspect]
     Indication: NAUSEA
     Route: 048
     Dates: start: 20060101
  10. ZOFRAN [Suspect]
     Indication: NAUSEA
     Route: 048
     Dates: start: 20070201
  11. KLONOPIN [Concomitant]
  12. NEURONTIN [Concomitant]
  13. LITHIUM [Concomitant]
     Indication: MOOD SWINGS
     Dosage: DAILY DOSE:450MG
     Route: 048
  14. RISPERDAL [Concomitant]
     Indication: DEPRESSION
     Dosage: DAILY DOSE:6MG
     Route: 048
     Dates: start: 20030101
  15. TRAZODONE HCL [Concomitant]
     Indication: DEPRESSION
     Route: 048
  16. GABAPENTIN [Concomitant]
     Indication: NEURALGIA
     Route: 048
  17. PROVIGIL [Concomitant]
     Route: 048
     Dates: start: 20030101
  18. CLONAZEPAM [Concomitant]
     Indication: TACHYCARDIA
     Route: 048
  19. METHOCARBAMOL [Concomitant]
     Indication: MUSCLE RELAXANT THERAPY
     Route: 048
  20. ASTELIN [Concomitant]
     Indication: SEASONAL ALLERGY
     Dosage: FREQ:AS REQUIRED
     Route: 045

REACTIONS (4)
  - DRUG INTERACTION [None]
  - DRUG TOXICITY [None]
  - HAEMORRHAGE [None]
  - PULMONARY EMBOLISM [None]
